FAERS Safety Report 17942937 (Version 1)
Quarter: 2020Q2

REPORT INFORMATION
  Report Type: Spontaneous
  Country: US (occurrence: US)
  Receive Date: 20200625
  Receipt Date: 20200625
  Transmission Date: 20200714
  Serious: No
  Sender: FDA-Public Use
  Company Number: None

PATIENT
  Age: 64 Year
  Sex: Male

DRUGS (4)
  1. HUMIRA [Suspect]
     Active Substance: ADALIMUMAB
     Indication: COLITIS ULCERATIVE
     Dosage: ?          OTHER FREQUENCY:EVERY 14 DAYS;?
     Route: 058
     Dates: start: 20200108, end: 20200625
  2. MESALAMINE 1.2G TABLETS [Concomitant]
     Dates: start: 20190903
  3. VANCOMYCIN 125MG CAPSULES [Concomitant]
     Dates: start: 20200602, end: 20200620
  4. PREDNISONE 10MG [Concomitant]
     Active Substance: PREDNISONE
     Dates: start: 20200415, end: 20200603

REACTIONS (3)
  - Therapy cessation [None]
  - Therapy non-responder [None]
  - Infection [None]
